FAERS Safety Report 11307699 (Version 3)
Quarter: 2015Q3

REPORT INFORMATION
  Report Type: Spontaneous
  Country: US (occurrence: US)
  Receive Date: 20150724
  Receipt Date: 20150811
  Transmission Date: 20151125
  Serious: No
  Sender: FDA-Public Use
  Company Number: US-AMGEN-USASP2015072581

PATIENT
  Age: 39 Year
  Sex: Female

DRUGS (5)
  1. FLONASE                            /00908302/ [Concomitant]
     Indication: RHINITIS
     Dosage: QD
     Route: 045
  2. SEROQUEL [Concomitant]
     Active Substance: QUETIAPINE FUMARATE
     Dosage: QD
     Route: 048
  3. LEXAPRO [Concomitant]
     Active Substance: ESCITALOPRAM OXALATE
     Indication: MAJOR DEPRESSION
     Dosage: QD
     Route: 048
  4. PRILOSEC [Concomitant]
     Active Substance: OMEPRAZOLE MAGNESIUM
     Indication: GASTROOESOPHAGEAL REFLUX DISEASE
     Dosage: UNK UNK, QD
     Route: 048
  5. ENBREL [Suspect]
     Active Substance: ETANERCEPT
     Indication: PSORIASIS
     Dosage: 50 MG, QWEEK
     Route: 058
     Dates: start: 20150714

REACTIONS (4)
  - Injection site swelling [Unknown]
  - Hot flush [Recovered/Resolved]
  - Nausea [Recovered/Resolved]
  - Injection site erythema [Unknown]

NARRATIVE: CASE EVENT DATE: 20150728
